FAERS Safety Report 4316767-7 (Version None)
Quarter: 2004Q1

REPORT INFORMATION
  Report Type: 
  Country: None (occurrence: None)
  Receive Date: 20040311
  Receipt Date: 20040226
  Transmission Date: 20041129
  Serious: Yes (Hospitalization)
  Sender: FDA-Public Use
  Company Number: 200410097BFR

PATIENT
  Age: 68 Year
  Sex: Male
  Weight: 86 kg

DRUGS (10)
  1. CIPROFLOXACIN [Suspect]
     Indication: SEPSIS
     Dosage: 1500 MG, TOTAL DAILY, ORAL
     Route: 048
     Dates: start: 20031201
  2. CIPROFLOXACIN [Suspect]
     Indication: URINARY TRACT INFECTION
     Dosage: 1500 MG, TOTAL DAILY, ORAL
     Route: 048
     Dates: start: 20031201
  3. OMEPRAZOLE [Suspect]
     Dosage: 20 MG, TOTAL DAILY, ORAL
     Route: 048
  4. AMLOR [Concomitant]
  5. FRAXIPARINE [Concomitant]
  6. GLUCOPHAGE [Concomitant]
  7. CALCIPARINE [Concomitant]
  8. MIXTARD HUMAN 70/30 [Concomitant]
  9. NOVONORM [Concomitant]
  10. LASIX [Concomitant]

REACTIONS (3)
  - AGRANULOCYTOSIS [None]
  - SEPTIC SHOCK [None]
  - STAPHYLOCOCCAL INFECTION [None]
